FAERS Safety Report 6585625-X (Version None)
Quarter: 2010Q1

REPORT INFORMATION
  Report Type: 
  Country: None (occurrence: None)
  Receive Date: 20100217
  Receipt Date: 20100201
  Transmission Date: 20100710
  Serious: Yes (Death)
  Sender: FDA-Public Use
  Company Number: US-BAYER-US-2007-006360

PATIENT
  Age: 43 Year
  Sex: Male
  Weight: 52 kg

DRUGS (37)
  1. MAGNEVIST [Suspect]
     Indication: NUCLEAR MAGNETIC RESONANCE IMAGING
     Dosage: TOTAL DAILY DOSE: 20 ML  UNIT DOSE: 20 ML
     Route: 042
     Dates: start: 20001217, end: 20001217
  2. MAGNEVIST [Suspect]
     Dosage: TOTAL DAILY DOSE: 15 ML  UNIT DOSE: 15 ML
     Route: 042
     Dates: start: 20020906, end: 20020906
  3. MAGNEVIST [Suspect]
     Dosage: TOTAL DAILY DOSE: 20 ML  UNIT DOSE: 20 ML
     Route: 042
     Dates: start: 20020926, end: 20020926
  4. MAGNEVIST [Suspect]
     Dosage: TOTAL DAILY DOSE: 60 ML  UNIT DOSE: 60 ML
     Route: 042
     Dates: start: 20040708, end: 20040708
  5. MAGNEVIST [Suspect]
     Dosage: TOTAL DAILY DOSE: 20 ML  UNIT DOSE: 20 ML
     Route: 042
     Dates: start: 20040828, end: 20040828
  6. ADCO-CAPTOPRIL [Concomitant]
     Dosage: UNIT DOSE: 12.5 MG
     Dates: start: 20040719
  7. RENAGEL [Concomitant]
     Dosage: UNIT DOSE: 1600 MG
  8. NEPHROCAPS [Concomitant]
     Dosage: 1 CAP(S), 1X/DAY [DAILY DOSE: 1 CAP(S)]
     Route: 048
  9. LEVOXYL [Concomitant]
     Dosage: UNIT DOSE: 25 ?G
  10. ESOMEPRAZOLE MAGNESIUM [Concomitant]
     Dosage: UNIT DOSE: 20 MG
     Route: 048
     Dates: start: 20040719
  11. FLUVOXAMINE [Concomitant]
     Dosage: UNIT DOSE: 50 MG
     Route: 048
  12. NIFEREX [Concomitant]
     Dosage: UNIT DOSE: 150 MG
     Route: 048
  13. CARVEDILOL [Concomitant]
     Dosage: UNIT DOSE: 6.25 MG
     Route: 048
  14. LOPRESSOR [Concomitant]
     Dosage: UNIT DOSE: 12.5 MG
  15. PROTONIX [Concomitant]
     Dosage: UNIT DOSE: 40 MG
     Route: 048
  16. WARFARIN SODIUM [Concomitant]
  17. ALDACTONE [Concomitant]
     Dosage: UNIT DOSE: 12.5 MG
  18. WELLBUTRIN [Concomitant]
     Dosage: UNIT DOSE: 150 MG
  19. SEROQUEL [Concomitant]
     Dosage: UNIT DOSE: 25 MG
  20. PHOSLO [Concomitant]
  21. VITAMIN B1 TAB [Concomitant]
  22. COLACE [Concomitant]
  23. ZINC [Concomitant]
  24. QUININE SULFATE [Concomitant]
     Dosage: UNIT DOSE: 260 MG
  25. LUVOX [Concomitant]
  26. ATIVAN [Concomitant]
  27. RANITIDINE [Concomitant]
  28. INSULIN [Concomitant]
  29. SENNA SYRUP [Concomitant]
  30. BISACODYL [Concomitant]
  31. LACTULOSE [Concomitant]
  32. METOCLOPRAMIDE [Concomitant]
  33. EPOGEN [Concomitant]
  34. ULTRAVIST 150 [Concomitant]
     Dosage: UNIT DOSE: 70 ML
     Route: 042
     Dates: start: 20040721, end: 20040721
  35. ULTRAVIST 150 [Concomitant]
     Dosage: UNIT DOSE: 150 ML
     Route: 042
     Dates: start: 20000907, end: 20000907
  36. ULTRAVIST 150 [Concomitant]
     Dosage: UNIT DOSE: 20 ML
     Route: 042
     Dates: start: 20040907, end: 20040907
  37. LASIX [Concomitant]
     Indication: OEDEMA

REACTIONS (8)
  - JOINT CONTRACTURE [None]
  - JOINT RANGE OF MOTION DECREASED [None]
  - MUSCULOSKELETAL STIFFNESS [None]
  - NEPHROGENIC SYSTEMIC FIBROSIS [None]
  - OEDEMA PERIPHERAL [None]
  - SKIN HYPERTROPHY [None]
  - SKIN INDURATION [None]
  - SKIN TIGHTNESS [None]
